FAERS Safety Report 22087740 (Version 2)
Quarter: 2023Q2

REPORT INFORMATION
  Report Type: Spontaneous
  Country: US (occurrence: US)
  Receive Date: 20230313
  Receipt Date: 20230615
  Transmission Date: 20230721
  Serious: Yes (Other)
  Sender: FDA-Public Use
  Company Number: US-JNJFOC-20230306510

PATIENT
  Age: 8 Decade
  Sex: Female

DRUGS (14)
  1. STELARA [Suspect]
     Active Substance: USTEKINUMAB
     Indication: Crohn^s disease
     Route: 058
  2. STELARA [Suspect]
     Active Substance: USTEKINUMAB
     Indication: Autoimmune disorder
  3. SYNTHROID [Concomitant]
     Active Substance: LEVOTHYROXINE SODIUM
  4. OMEPRAZOLE [Concomitant]
     Active Substance: OMEPRAZOLE
  5. FAMOTIDINE [Concomitant]
     Active Substance: FAMOTIDINE
  6. SIMVASTATIN [Concomitant]
     Active Substance: SIMVASTATIN
  7. MESALAMINE [Concomitant]
     Active Substance: MESALAMINE
  8. ESTRADIOL [Concomitant]
     Active Substance: ESTRADIOL
  9. CEQUA [Concomitant]
     Active Substance: CYCLOSPORINE
  10. VITAMIN B12 [Concomitant]
     Active Substance: CYANOCOBALAMIN
  11. BIOTIN [Concomitant]
     Active Substance: BIOTIN
  12. ERGOCALCIFEROL [Concomitant]
     Active Substance: ERGOCALCIFEROL
  13. FLAX SEEDS [Concomitant]
     Active Substance: FLAX SEEDS
  14. PREBIOTICS NOS;PROBIOTICS NOS [Concomitant]

REACTIONS (4)
  - Deafness [Unknown]
  - Cardiac disorder [Unknown]
  - Arthralgia [Unknown]
  - Presbyacusis [Unknown]

NARRATIVE: CASE EVENT DATE: 20220801
